FAERS Safety Report 5734600-3 (Version None)
Quarter: 2008Q2

REPORT INFORMATION
  Report Type: 
  Country: None (occurrence: None)
  Receive Date: 20080508
  Receipt Date: 20080508
  Transmission Date: 20081010
  Serious: Yes (Other)
  Sender: FDA-Public Use
  Company Number: None

PATIENT
  Age: 74 Year
  Sex: Female
  Weight: 81.6475 kg

DRUGS (2)
  1. DIGITEK 0.25MG MYLAN BERTEK [Suspect]
     Indication: ATRIAL FIBRILLATION
     Dosage: 0.25 1 QD PO
     Route: 048
     Dates: start: 20080415, end: 20080505
  2. DIGITEK 0.25MG MYLAN BERTEK [Suspect]
     Indication: MITRAL VALVE PROLAPSE
     Dosage: 0.25 1 QD PO
     Route: 048
     Dates: start: 20080415, end: 20080505

REACTIONS (5)
  - ASTHENIA [None]
  - FEELING ABNORMAL [None]
  - HEART RATE DECREASED [None]
  - LETHARGY [None]
  - NAUSEA [None]
